FAERS Safety Report 24031113 (Version 1)
Quarter: 2024Q2

REPORT INFORMATION
  Report Type: Spontaneous
  Country: NO (occurrence: NO)
  Receive Date: 20240628
  Receipt Date: 20240628
  Transmission Date: 20240716
  Serious: Yes (Hospitalization)
  Sender: FDA-Public Use
  Company Number: None

PATIENT
  Age: 75 Year
  Sex: Female
  Weight: 89.7 kg

DRUGS (9)
  1. AMLODIPINE\VALSARTAN [Interacting]
     Active Substance: AMLODIPINE\VALSARTAN
     Indication: Product used for unknown indication
     Route: 048
     Dates: end: 20240529
  2. GENTAMICIN [Interacting]
     Active Substance: GENTAMICIN
     Indication: Sepsis
     Dosage: TIME INTERVAL: TOTAL: TREATED WITH ONE DOSE OF 400 MG ON 28/MAY/2024, AND A SECOND DOSE OF 540 MG...
     Route: 042
     Dates: start: 20240528, end: 20240528
  3. GENTAMICIN [Interacting]
     Active Substance: GENTAMICIN
     Indication: Sepsis
     Dosage: TIME INTERVAL: TOTAL: TREATED WITH ONE DOSE OF 400 MG ON 28/MAY/2024, AND A SECOND DOSE OF 540 MG...
     Route: 065
     Dates: start: 20240531, end: 20240531
  4. EZETIMIBE [Concomitant]
     Active Substance: EZETIMIBE
     Indication: Product used for unknown indication
     Route: 065
  5. ACETAMINOPHEN [Concomitant]
     Active Substance: ACETAMINOPHEN
     Indication: Product used for unknown indication
     Dosage: 1 TABLET AS REQUIRED UP TO MAX 4 TIMES DAILY.
     Route: 065
  6. FUROSEMIDE [Concomitant]
     Active Substance: FUROSEMIDE
     Indication: Product used for unknown indication
     Route: 065
  7. ATORVASTATIN [Concomitant]
     Active Substance: ATORVASTATIN
     Indication: Product used for unknown indication
     Route: 065
  8. NEXIUM [Concomitant]
     Active Substance: ESOMEPRAZOLE MAGNESIUM
     Indication: Product used for unknown indication
     Route: 065
  9. VAGIFEM [Concomitant]
     Active Substance: ESTRADIOL
     Indication: Product used for unknown indication
     Dosage: 1 VAGINAL TABLET, EVERY THIRD DAY.
     Route: 065

REACTIONS (1)
  - Acute kidney injury [Recovered/Resolved]

NARRATIVE: CASE EVENT DATE: 20240528
